FAERS Safety Report 15895219 (Version 1)
Quarter: 2019Q1

REPORT INFORMATION
  Report Type: Report from Study
  Country: DE (occurrence: DE)
  Receive Date: 20190131
  Receipt Date: 20190131
  Transmission Date: 20190417
  Serious: Yes (Hospitalization, Other)
  Sender: FDA-Public Use
  Company Number: DE-BAUSCH-BL-2019-002662

PATIENT
  Age: 74 Year
  Sex: Female

DRUGS (5)
  1. HUMIRA [Suspect]
     Active Substance: ADALIMUMAB
     Indication: RHEUMATOID ARTHRITIS
     Dosage: 40MG/0.4ML
     Route: 058
     Dates: start: 201601, end: 20180912
  2. HUMIRA [Suspect]
     Active Substance: ADALIMUMAB
     Dosage: 40MG/0.4ML. FREQUENCY: 14 DAYS
     Route: 058
     Dates: start: 201811, end: 201812
  3. DICLOFENAC [Suspect]
     Active Substance: DICLOFENAC
     Indication: PRODUCT USED FOR UNKNOWN INDICATION
     Route: 065
     Dates: end: 201811
  4. CORTISON [Suspect]
     Active Substance: CORTISONE ACETATE
     Indication: DIARRHOEA
     Dosage: 1 (UNSPECIFIED DOSAGE UNIT); FREQUENCY: 1 DAY
     Route: 065
  5. CORTISON [Suspect]
     Active Substance: CORTISONE ACETATE
     Route: 065
     Dates: start: 201811

REACTIONS (8)
  - Weight decreased [Recovering/Resolving]
  - Pain [Recovering/Resolving]
  - Gastrointestinal inflammation [Recovering/Resolving]
  - Gastrointestinal viral infection [Unknown]
  - Pancreatic failure [Not Recovered/Not Resolved]
  - Diarrhoea [Recovering/Resolving]
  - Cystitis [Recovering/Resolving]
  - Gastritis [Not Recovered/Not Resolved]

NARRATIVE: CASE EVENT DATE: 2018
